FAERS Safety Report 4492542-8 (Version None)
Quarter: 2004Q4

REPORT INFORMATION
  Report Type: 
  Country: None (occurrence: None)
  Receive Date: 20041029
  Receipt Date: 20041018
  Transmission Date: 20050328
  Serious: Yes (Hospitalization)
  Sender: FDA-Public Use
  Company Number: JP-SHR-04-020148

PATIENT
  Age: 43 Year
  Sex: Female
  Weight: 52 kg

DRUGS (5)
  1. BETAFERON (INTERFERON ETA 1B)INJECTION, 250UG [Suspect]
     Indication: MULTIPLE SCLEROSIS
     Dosage: 8 MIU, EVERY 2D, SUBCUTANEOUS
     Route: 058
     Dates: start: 20020212, end: 20031210
  2. ANTIFUNGALS [Concomitant]
  3. VOLTAREN [Concomitant]
  4. IMIGRAN (SUMATRIPTAN SUCCINATE) [Concomitant]
  5. DEPAS [Concomitant]

REACTIONS (2)
  - HYPERTENSION [None]
  - NEPHROTIC SYNDROME [None]
